FAERS Safety Report 10041076 (Version 2)
Quarter: 2014Q2

REPORT INFORMATION
  Report Type: Spontaneous
  Country: US (occurrence: US)
  Receive Date: 20140327
  Receipt Date: 20140502
  Transmission Date: 20141212
  Serious: Yes (Other)
  Sender: FDA-Public Use
  Company Number: US-ASTELLAS-2014US002952

PATIENT
  Age: 79 Year
  Sex: Male

DRUGS (2)
  1. XTANDI [Suspect]
     Indication: PROSTATE CANCER
     Route: 048
     Dates: end: 20140319
  2. XTANDI [Suspect]
     Dosage: 160 UNK, UNK
     Route: 048
     Dates: start: 20140320

REACTIONS (1)
  - Cataract [Recovered/Resolved]
